FAERS Safety Report 7543570-7 (Version None)
Quarter: 2011Q2

REPORT INFORMATION
  Report Type: 
  Country: None (occurrence: None)
  Receive Date: 20110613
  Receipt Date: 20021028
  Transmission Date: 20111010
  Serious: Yes (Hospitalization)
  Sender: FDA-Public Use
  Company Number: PHBS2002JP11662

PATIENT
  Sex: Male
  Weight: 68 kg

DRUGS (5)
  1. PAMILCON [Concomitant]
     Dates: start: 19970101
  2. AMLODIPINE [Concomitant]
     Dates: start: 19970101
  3. LOCHOLEST [Suspect]
     Indication: HYPERCHOLESTEROLAEMIA
     Dosage: 20 MG/DAY
     Route: 048
     Dates: start: 20001028, end: 20020204
  4. PICLONADINE [Concomitant]
     Dates: start: 19991201
  5. ALLOPURINOL [Concomitant]
     Dates: start: 19970101, end: 20010201

REACTIONS (1)
  - DIABETES MELLITUS [None]
